FAERS Safety Report 6723589-6 (Version None)
Quarter: 2010Q2

REPORT INFORMATION
  Report Type: 
  Country: None (occurrence: None)
  Receive Date: 20100513
  Receipt Date: 20100503
  Transmission Date: 20101027
  Serious: Yes (Other)
  Sender: FDA-Public Use
  Company Number: PT-ABBOTT-10P-130-0642158-00

PATIENT
  Sex: Female

DRUGS (1)
  1. HUMIRA [Suspect]
     Indication: RHEUMATOID ARTHRITIS
     Route: 058
     Dates: start: 20071101, end: 20100401

REACTIONS (2)
  - NERVE CONDUCTION STUDIES ABNORMAL [None]
  - PERIPHERAL MOTOR NEUROPATHY [None]
